FAERS Safety Report 5049221-8 (Version None)
Quarter: 2006Q2

REPORT INFORMATION
  Report Type: 
  Country: None (occurrence: None)
  Receive Date: 20060613
  Receipt Date: 20060307
  Transmission Date: 20061013
  Serious: Yes (Other)
  Sender: FDA-Public Use
  Company Number: 2006-00535

PATIENT
  Age: 63 Year
  Sex: Male
  Weight: 70.3 kg

DRUGS (4)
  1. VELCADE [Suspect]
     Indication: MANTLE CELL LYMPHOMA
     Dosage: SEE IMAGE
     Route: 040
     Dates: start: 20040615, end: 20041001
  2. VELCADE [Suspect]
     Indication: MANTLE CELL LYMPHOMA
     Dosage: SEE IMAGE
     Route: 040
     Dates: start: 20041026, end: 20041026
  3. RITUXAN [Suspect]
     Indication: MANTLE CELL LYMPHOMA
     Dosage: INTRAVENOUS
     Route: 042
     Dates: start: 20040615
  4. NITROGLYCERIN TRANSDERMAL SYSTEM (GLYCERYL TRINITRATE) [Concomitant]

REACTIONS (2)
  - HERPES ZOSTER [None]
  - NEUROPATHY PERIPHERAL [None]
